FAERS Safety Report 8360270-4 (Version None)
Quarter: 2012Q2

REPORT INFORMATION
  Report Type: 
  Country: None (occurrence: None)
  Receive Date: 20120515
  Receipt Date: 20120508
  Transmission Date: 20120825
  Serious: Yes (Death, Hospitalization)
  Sender: FDA-Public Use
  Company Number: TR-SANOFI-AVENTIS-2012SA019926

PATIENT
  Age: 57 Year
  Sex: Male
  Weight: 75 kg

DRUGS (4)
  1. CABAZITAXEL [Suspect]
     Route: 042
     Dates: start: 20120309, end: 20120309
  2. NEUPOGEN [Concomitant]
     Indication: PROPHYLAXIS
     Route: 065
  3. CABAZITAXEL [Suspect]
     Indication: PROSTATE CANCER METASTATIC
     Route: 042
     Dates: start: 20110412, end: 20110412
  4. PREDNISOLONE [Suspect]
     Indication: PROSTATE CANCER METASTATIC
     Route: 048
     Dates: start: 20110412, end: 20120319

REACTIONS (5)
  - RENAL FAILURE ACUTE [None]
  - CARDIO-RESPIRATORY ARREST [None]
  - DIARRHOEA [None]
  - THROMBOCYTOPENIA [None]
  - NEUTROPENIA [None]
